FAERS Safety Report 6127000-8 (Version None)
Quarter: 2009Q1

REPORT INFORMATION
  Report Type: 
  Country: None (occurrence: None)
  Receive Date: 20090320
  Receipt Date: 20090317
  Transmission Date: 20090719
  Serious: Yes (Hospitalization)
  Sender: FDA-Public Use
  Company Number: DE-MERCK-0903DEU00156

PATIENT
  Age: 66 Year
  Sex: Male
  Weight: 74 kg

DRUGS (9)
  1. ZETIA [Suspect]
     Route: 048
     Dates: start: 20080902, end: 20090227
  2. LEVOTHYROXINE SODIUM [Concomitant]
     Indication: THYROIDECTOMY
     Route: 048
     Dates: start: 19600101
  3. HYDROCHLOROTHIAZIDE AND RAMIPRIL [Concomitant]
     Indication: HYPERTENSION
     Route: 048
     Dates: start: 20070101
  4. THEOPHYLLINE [Concomitant]
     Indication: BRONCHITIS CHRONIC
     Route: 048
     Dates: start: 20070101
  5. TIOTROPIUM BROMIDE [Concomitant]
     Indication: BRONCHITIS CHRONIC
     Dates: start: 20070101
  6. BUDESONIDE AND FORMOTEROL FUMARATE [Concomitant]
     Indication: BRONCHITIS CHRONIC
     Dates: start: 20070101
  7. FENOTEROL HYDROBROMIDE AND IPRATROPIUM BROMIDE [Concomitant]
     Indication: BRONCHITIS CHRONIC
     Dates: start: 20070101
  8. INSULIN, NEUTRAL [Concomitant]
     Indication: TYPE 2 DIABETES MELLITUS
     Route: 058
     Dates: start: 20070702
  9. INSULIN GLARGINE [Concomitant]
     Indication: TYPE 2 DIABETES MELLITUS
     Route: 058
     Dates: start: 20070702

REACTIONS (1)
  - HYPOTONIA [None]
